FAERS Safety Report 13901968 (Version 1)
Quarter: 2017Q3

REPORT INFORMATION
  Report Type: Spontaneous
  Country: US (occurrence: US)
  Receive Date: 20170824
  Receipt Date: 20170824
  Transmission Date: 20171127
  Serious: Yes (Other)
  Sender: FDA-Public Use
  Company Number: US-ROCHE-1129985

PATIENT
  Age: 64 Year
  Sex: Female

DRUGS (8)
  1. BENADRYL [Concomitant]
     Active Substance: DIPHENHYDRAMINE HYDROCHLORIDE
     Route: 065
     Dates: start: 19991116
  2. 5-FU [Concomitant]
     Active Substance: FLUOROURACIL
     Dosage: INTRAVENOUS FLUID
     Route: 065
  3. HERCEPTIN [Suspect]
     Active Substance: TRASTUZUMAB
     Dosage: MAINTAINANCE DOSE: 110 (UNIT NOT REPORTED)
     Route: 065
  4. DECADRON [Concomitant]
     Active Substance: DEXAMETHASONE
     Route: 065
     Dates: start: 19991116
  5. TAXOTERE [Concomitant]
     Active Substance: DOCETAXEL
     Route: 065
     Dates: start: 19991116
  6. HERCEPTIN [Suspect]
     Active Substance: TRASTUZUMAB
     Indication: BREAST CANCER METASTATIC
     Dosage: LOADING DOSE: 210 (UNIT NOT REPORTED), INTRAVENOUS FLUID
     Route: 042
     Dates: start: 19990914
  7. HEPARIN [Concomitant]
     Active Substance: HEPARIN SODIUM
     Route: 065
     Dates: start: 19991116
  8. ADRIA [Concomitant]
     Dosage: INTRAVENOUS FLUID
     Route: 065

REACTIONS (4)
  - Pain [Unknown]
  - Vomiting [Unknown]
  - Nausea [Unknown]
  - Dysuria [Unknown]

NARRATIVE: CASE EVENT DATE: 19991207
